FAERS Safety Report 14326319 (Version 1)
Quarter: 2017Q4

REPORT INFORMATION
  Report Type: Spontaneous
  Country: None (occurrence: US)
  Receive Date: 20171226
  Receipt Date: 20171226
  Transmission Date: 20180321
  Serious: Yes (Other)
  Sender: FDA-Public Use
  Company Number: US-CUTISPHARMA, INC.-2037787

PATIENT
  Age: 2 Month
  Sex: Male

DRUGS (1)
  1. FIRST OMEPRAZOLE RX [Suspect]
     Active Substance: OMEPRAZOLE
     Indication: GASTROOESOPHAGEAL REFLUX DISEASE
     Route: 048
     Dates: start: 20171027

REACTIONS (4)
  - Haematochezia [Recovering/Resolving]
  - Mucous stools [Not Recovered/Not Resolved]
  - Diarrhoea [Recovering/Resolving]
  - Clostridium difficile infection [Recovering/Resolving]

NARRATIVE: CASE EVENT DATE: 20171111
